FAERS Safety Report 10237260 (Version 1)
Quarter: 2014Q2

REPORT INFORMATION
  Report Type: Spontaneous
  Country: US (occurrence: US)
  Receive Date: 20140613
  Receipt Date: 20140613
  Transmission Date: 20141212
  Serious: No
  Sender: FDA-Public Use
  Company Number: US-B.I. PHARMACEUTICALS,INC./RIDGEFIELD-2014-BI-25316BP

PATIENT
  Age: 77 Year
  Sex: Female

DRUGS (5)
  1. PRADAXA [Suspect]
     Indication: ATRIAL FIBRILLATION
     Dosage: 300 MG
     Route: 048
     Dates: start: 2010
  2. FORTAO [Concomitant]
     Indication: OSTEOPOROSIS
     Route: 050
  3. CARDIZEM [Concomitant]
     Indication: HYPERTENSION
     Route: 048
  4. VITAMIN A [Concomitant]
     Route: 048
  5. CALCIUM [Concomitant]
     Indication: OSTEOPOROSIS
     Route: 048

REACTIONS (4)
  - Cough [Not Recovered/Not Resolved]
  - Throat irritation [Not Recovered/Not Resolved]
  - Depression [Not Recovered/Not Resolved]
  - Tooth disorder [Not Recovered/Not Resolved]
